FAERS Safety Report 9478190 (Version 3)
Quarter: 2014Q3

REPORT INFORMATION
  Report Type: Spontaneous
  Country: BR (occurrence: BR)
  Receive Date: 20130827
  Receipt Date: 20140926
  Transmission Date: 20150326
  Serious: Yes (Hospitalization, Other)
  Sender: FDA-Public Use
  Company Number: BR-PFIZER INC-2013084290

PATIENT
  Age: 53 Year
  Sex: Female
  Weight: 62 kg

DRUGS (3)
  1. PURAN [Concomitant]
     Active Substance: LEVOTHYROXINE SODIUM
     Dosage: UNSPECIFIED DOSE, ONCE DAILY
  2. SUTENT [Suspect]
     Active Substance: SUNITINIB MALATE
     Indication: RENAL CELL CARCINOMA
     Dosage: 50 MG, CYCLIC (CYCLE 4X2)
     Route: 048
     Dates: start: 201301
  3. SUTENT [Suspect]
     Active Substance: SUNITINIB MALATE
     Dosage: 37.5 MG, CYCLIC (CYCLE 4 PER 2)
     Route: 048
     Dates: start: 201302, end: 201402

REACTIONS (16)
  - Lung disorder [Unknown]
  - Diarrhoea [Unknown]
  - Ageusia [Not Recovered/Not Resolved]
  - Throat irritation [Not Recovered/Not Resolved]
  - Yellow skin [Unknown]
  - Cough [Unknown]
  - Retching [Unknown]
  - Dyspepsia [Unknown]
  - Eating disorder [Recovering/Resolving]
  - Renal disorder [Unknown]
  - Vomiting [Unknown]
  - Blister [Unknown]
  - Weight decreased [Unknown]
  - Stomatitis [Recovered/Resolved]
  - Asthenia [Not Recovered/Not Resolved]
  - Dysphonia [Unknown]

NARRATIVE: CASE EVENT DATE: 2013
